FAERS Safety Report 8160432-5 (Version None)
Quarter: 2012Q1

REPORT INFORMATION
  Report Type: 
  Country: None (occurrence: None)
  Receive Date: 20120223
  Receipt Date: 20120214
  Transmission Date: 20120608
  Serious: No
  Sender: FDA-Public Use
  Company Number: US-B.I. PHARMACEUTICALS,INC./RIDGEFIELD-2012-BP-02895BP

PATIENT
  Age: 77 Year
  Sex: Male

DRUGS (7)
  1. FUROSEMIDE [Concomitant]
     Indication: FLUID RETENTION
  2. AMIODARONE HCL [Concomitant]
     Indication: PROPHYLAXIS
  3. JANTOVEN [Concomitant]
     Indication: DIABETES MELLITUS
  4. HUMULIN R [Concomitant]
     Indication: DIABETES MELLITUS
  5. ALBUTEROL [Concomitant]
     Indication: ASBESTOSIS
  6. SPIRIVA [Suspect]
     Indication: ASBESTOSIS
     Dosage: 18 MCG
     Route: 055
     Dates: start: 20111101, end: 20120212
  7. SPIRONOLACTONE [Concomitant]
     Indication: FLUID RETENTION

REACTIONS (3)
  - POOR QUALITY SLEEP [None]
  - NAUSEA [None]
  - ABDOMINAL PAIN UPPER [None]
